FAERS Safety Report 8563281 (Version 4)
Quarter: 2012Q4

REPORT INFORMATION
  Report Type: Report from Study
  Country: CA (occurrence: CA)
  Receive Date: 20120515
  Receipt Date: 20121102
  Transmission Date: 20130627
  Serious: Yes (Hospitalization)
  Sender: FDA-Public Use
  Company Number: CA-EISAI INC-E7389-02417-CLI-CA

PATIENT
  Age: 45 Year
  Sex: Female
  Weight: 54 kg

DRUGS (7)
  1. E7389 (BOLD) [Suspect]
     Indication: METASTATIC BREAST CANCER
     Route: 041
     Dates: start: 20120425, end: 20120502
  2. E7389 (BOLD) [Suspect]
     Route: 041
     Dates: start: 20120509
  3. DILANTIN [Concomitant]
     Indication: PROPHYLAXIS
     Route: 048
  4. FRISIUM [Concomitant]
     Indication: PROPHYLAXIS
     Route: 048
  5. K-DUR [Concomitant]
     Indication: HYPOKALEMIA
     Route: 048
     Dates: start: 20120523
  6. CODEINE [Concomitant]
     Indication: COUGH
     Dosage: 15-30EC
     Route: 048
     Dates: start: 20120525
  7. DOCUSATE [Concomitant]
     Indication: CONSTIPATION
     Route: 048

REACTIONS (2)
  - Pneumonia [Recovering/Resolving]
  - Pleural effusion [Not Recovered/Not Resolved]
